FAERS Safety Report 9760616 (Version 1)
Quarter: 2013Q4

REPORT INFORMATION
  Report Type: Spontaneous
  Country: US (occurrence: US)
  Receive Date: 20131216
  Receipt Date: 20131216
  Transmission Date: 20140711
  Serious: No
  Sender: FDA-Public Use
  Company Number: US-BIOGENIDEC-2013BI093286

PATIENT
  Sex: Female
  Weight: 90 kg

DRUGS (6)
  1. TECFIDERA [Suspect]
     Indication: MULTIPLE SCLEROSIS
     Route: 048
     Dates: start: 201309
  2. CELEXA [Concomitant]
  3. HCTZ [Concomitant]
  4. IBUPROFEN [Concomitant]
  5. SYNTHROID [Concomitant]
  6. PROPRANOLOL [Concomitant]

REACTIONS (1)
  - Flushing [Unknown]
